FAERS Safety Report 8616085-2 (Version None)
Quarter: 2012Q3

REPORT INFORMATION
  Report Type: 
  Country: None (occurrence: None)
  Receive Date: 20120823
  Receipt Date: 20110928
  Transmission Date: 20120928
  Serious: Yes (Other)
  Sender: FDA-Public Use
  Company Number: DE-ROCHE-1000630

PATIENT

DRUGS (1)
  1. COPEGUS [Suspect]
     Indication: VIRAL INFECTION
     Route: 048

REACTIONS (3)
  - HAEMOLYSIS [None]
  - NAUSEA [None]
  - RENAL FAILURE [None]
